FAERS Safety Report 6096358-0 (Version None)
Quarter: 2009Q1

REPORT INFORMATION
  Report Type: 
  Country: None (occurrence: None)
  Receive Date: 20090227
  Receipt Date: 20081120
  Transmission Date: 20090719
  Serious: No
  Sender: FDA-Public Use
  Company Number: A0757445A

PATIENT
  Age: 33 Year
  Sex: Female

DRUGS (8)
  1. LAMICTAL [Suspect]
     Dosage: 200MG PER DAY
     Route: 048
     Dates: start: 20071101
  2. ABILIFY [Suspect]
  3. CELEXA [Suspect]
  4. DEPAKOTE [Suspect]
     Dosage: 500MG PER DAY
     Route: 048
     Dates: start: 20081001
  5. GENERAL ANESTHESIA [Suspect]
     Dates: start: 20080625, end: 20080625
  6. ZOLOFT [Suspect]
  7. ZYPREXA [Suspect]
  8. MULTI-VITAMIN [Concomitant]

REACTIONS (7)
  - DISTURBANCE IN ATTENTION [None]
  - DYSPHEMIA [None]
  - ILLUSION [None]
  - MEMORY IMPAIRMENT [None]
  - PERSONALITY CHANGE [None]
  - SLEEP DISORDER [None]
  - SOMNOLENCE [None]
